FAERS Safety Report 6704433-X (Version None)
Quarter: 2010Q2

REPORT INFORMATION
  Report Type: 
  Country: None (occurrence: None)
  Receive Date: 20100430
  Receipt Date: 20100423
  Transmission Date: 20101027
  Serious: Yes (Other)
  Sender: FDA-Public Use
  Company Number: GB-BRISTOL-MYERS SQUIBB COMPANY-15082126

PATIENT

DRUGS (4)
  1. ERBITUX [Suspect]
     Indication: GASTROINTESTINAL CARCINOMA
     Route: 042
  2. OXALIPLATIN [Concomitant]
     Indication: GASTROINTESTINAL CARCINOMA
  3. FLUOROURACIL [Concomitant]
     Indication: GASTROINTESTINAL CARCINOMA
  4. FOLINIC ACID [Concomitant]
     Indication: GASTROINTESTINAL CARCINOMA

REACTIONS (2)
  - PERITONITIS [None]
  - TUMOUR PERFORATION [None]
